FAERS Safety Report 14606971 (Version 2)
Quarter: 2018Q2

REPORT INFORMATION
  Report Type: Spontaneous
  Country: ES (occurrence: ES)
  Receive Date: 20180307
  Receipt Date: 20180412
  Transmission Date: 20180711
  Serious: No
  Sender: FDA-Public Use
  Company Number: ES-ROCHE-2080176

PATIENT
  Age: 21 Year
  Sex: Male
  Weight: 63 kg

DRUGS (4)
  1. CELEBREX [Concomitant]
     Active Substance: CELECOXIB
     Dosage: 1 IN 12
     Route: 048
  2. VISMODEGIB. [Suspect]
     Active Substance: VISMODEGIB
     Indication: MEDULLOBLASTOMA RECURRENT
     Route: 048
     Dates: start: 20171212
  3. OMEPRAZOL [Concomitant]
     Active Substance: OMEPRAZOLE
     Indication: PROPHYLAXIS
     Route: 048
     Dates: start: 2016
  4. FENOFIBRATE. [Concomitant]
     Active Substance: FENOFIBRATE
     Route: 048
     Dates: start: 2016

REACTIONS (3)
  - Intentional product use issue [Unknown]
  - Off label use [Unknown]
  - Myalgia [Recovered/Resolved]

NARRATIVE: CASE EVENT DATE: 20180218
